FAERS Safety Report 10064304 (Version 1)
Quarter: 2014Q2

REPORT INFORMATION
  Report Type: Spontaneous
  Country: US (occurrence: None)
  Receive Date: 20140407
  Receipt Date: 20140407
  Transmission Date: 20141212
  Serious: Yes (Life-Threatening)
  Sender: FDA-Public Use
  Company Number: None

PATIENT
  Age: 23 Year
  Sex: Female
  Weight: 63.5 kg

DRUGS (1)
  1. CYMBALTA [Suspect]
     Indication: DEPRESSION
     Dosage: TAKEN BY MOUTH
     Dates: start: 20120930, end: 20130430

REACTIONS (7)
  - Syncope [None]
  - Emotional disorder [None]
  - Insomnia [None]
  - Anger [None]
  - Tinnitus [None]
  - Mood altered [None]
  - Abnormal behaviour [None]
